FAERS Safety Report 13193225 (Version 1)
Quarter: 2017Q1

REPORT INFORMATION
  Report Type: Spontaneous
  Country: IN (occurrence: IN)
  Receive Date: 20170207
  Receipt Date: 20170207
  Transmission Date: 20170428
  Serious: Yes (Other)
  Sender: FDA-Public Use
  Company Number: IN-SUPERNUS PHARMACEUTICALS, INC.-2017SUP00018

PATIENT
  Age: 24 Year
  Sex: Male

DRUGS (1)
  1. TOPIRAMATE. [Suspect]
     Active Substance: TOPIRAMATE
     Indication: CONVULSION PROPHYLAXIS
     Dosage: 50 MG, 2X/DAY
     Route: 065

REACTIONS (5)
  - Metabolic acidosis [Recovered/Resolved]
  - Hyperventilation [Recovered/Resolved]
  - Renal tubular acidosis [Recovered/Resolved]
  - Altered state of consciousness [Recovered/Resolved]
  - Respiratory alkalosis [Recovered/Resolved]
